FAERS Safety Report 7945069-2 (Version None)
Quarter: 2011Q4

REPORT INFORMATION
  Report Type: 
  Country: None (occurrence: None)
  Receive Date: 20111129
  Receipt Date: 20111120
  Transmission Date: 20120403
  Serious: Yes (Hospitalization)
  Sender: FDA-Public Use
  Company Number: DE-UCBSA-042587

PATIENT
  Sex: Male
  Weight: 74 kg

DRUGS (20)
  1. KEPPRA [Suspect]
     Dosage: SINGLE DOSE: 500-1500MG ; GRADUALLY WEANED OFF
     Route: 048
  2. PANTOPRAZOLE SODIUM [Concomitant]
     Indication: GASTRIC DISORDER
     Dates: start: 20070101
  3. TAMSUBLOCK [Concomitant]
     Indication: BENIGN PROSTATIC HYPERPLASIA
     Route: 048
     Dates: start: 20100101
  4. TAMSUBLOCK [Concomitant]
     Indication: URINARY TRACT DISORDER
     Route: 048
     Dates: start: 20100101
  5. LAMICTAL [Concomitant]
     Dosage: UP-TITRATION
  6. VIMPAT [Suspect]
     Indication: HEADACHE
     Route: 048
     Dates: start: 20110401
  7. BISOPROLOL FUMARATE [Concomitant]
     Indication: HYPERTENSION
     Route: 048
     Dates: start: 20090101
  8. VIMPAT [Suspect]
     Indication: PARTIAL SEIZURES
     Route: 048
     Dates: start: 20110401
  9. VIMPAT [Suspect]
     Indication: SLEEP DISORDER
     Route: 048
     Dates: start: 20110401
  10. ARICEPT [Concomitant]
     Indication: MEMORY IMPAIRMENT
     Route: 048
     Dates: start: 20100101
  11. VIMPAT [Suspect]
     Indication: CONVULSION
     Route: 048
     Dates: start: 20110401
  12. SIMVALIP [Concomitant]
     Indication: HYPERLIPIDAEMIA
     Route: 048
     Dates: start: 20070101
  13. RANITIDINE HCL [Concomitant]
     Indication: GASTRIC DISORDER
     Dates: start: 20080101
  14. KEPPRA [Suspect]
     Indication: PARTIAL SEIZURES
     Dosage: SINGLE DOSE: 500-1500MG
     Route: 048
     Dates: start: 20100401
  15. PROMETHAZINE [Concomitant]
     Indication: SLEEP DISORDER
     Route: 048
     Dates: start: 20110101
  16. LAMICTAL [Concomitant]
  17. KEPPRA [Suspect]
     Dosage: SINGLE DOSE: 500-1500MG ; GRADUALLY WEANED OFF
     Route: 048
  18. CA+D3, EFFERV [Concomitant]
     Indication: BONE DISORDER
     Dates: start: 20070101
  19. KEPPRA [Suspect]
     Indication: CONVULSION
     Dosage: SINGLE DOSE: 500-1500MG
     Route: 048
     Dates: start: 20100401
  20. EFFIENT [Concomitant]
     Indication: CORONARY ARTERY DISEASE
     Route: 048
     Dates: start: 20090101

REACTIONS (6)
  - URETHRAL STENOSIS [None]
  - SLEEP DISORDER [None]
  - HEADACHE [None]
  - DRUG EFFECT DECREASED [None]
  - TONSILLAR HAEMORRHAGE [None]
  - HAEMATOMA [None]
